FAERS Safety Report 19674916 (Version 1)
Quarter: 2021Q3

REPORT INFORMATION
  Report Type: Spontaneous
  Country: BE (occurrence: BE)
  Receive Date: 20210809
  Receipt Date: 20210809
  Transmission Date: 20211014
  Serious: Yes (Other)
  Sender: FDA-Public Use
  Company Number: BE-ROCHE-2882915

PATIENT
  Age: 52 Year
  Sex: Female

DRUGS (1)
  1. XOLAIR [Suspect]
     Active Substance: OMALIZUMAB
     Indication: CHRONIC SPONTANEOUS URTICARIA
     Route: 065
     Dates: start: 20210722

REACTIONS (12)
  - Erythema [Unknown]
  - Pruritus [Unknown]
  - Stress [Unknown]
  - Skin swelling [Unknown]
  - Oedema [Unknown]
  - Lip swelling [Unknown]
  - Papule [Unknown]
  - Rash [Unknown]
  - Urticaria [Unknown]
  - Angioedema [Recovered/Resolved]
  - Eye swelling [Unknown]
  - Flushing [Unknown]

NARRATIVE: CASE EVENT DATE: 20210723
